FAERS Safety Report 9745545 (Version 1)
Quarter: 2013Q4

REPORT INFORMATION
  Report Type: Report from Study
  Country: CA (occurrence: CA)
  Receive Date: 20131211
  Receipt Date: 20131211
  Transmission Date: 20140711
  Serious: Yes (Other)
  Sender: FDA-Public Use
  Company Number: CA-JNJFOC-20131204595

PATIENT
  Age: 57 Year
  Sex: Male
  Weight: 60.33 kg

DRUGS (1)
  1. STELARA [Suspect]
     Indication: CROHN^S DISEASE
     Route: 058
     Dates: start: 20130621

REACTIONS (3)
  - Abscess [Unknown]
  - Drug effect decreased [Unknown]
  - Off label use [Unknown]
